FAERS Safety Report 9296817 (Version 1)
Quarter: 2013Q2

REPORT INFORMATION
  Report Type: Report from Study
  Country: VE (occurrence: VE)
  Receive Date: 20130517
  Receipt Date: 20130517
  Transmission Date: 20140414
  Serious: Yes (Hospitalization, Other)
  Sender: FDA-Public Use
  Company Number: VE-ABBOTT-13P-178-1091152-00

PATIENT
  Age: 34 Year
  Sex: Female
  Weight: 71 kg

DRUGS (2)
  1. HUMIRA [Suspect]
     Indication: RHEUMATOID ARTHRITIS
     Route: 058
     Dates: start: 20100723, end: 201103
  2. CHEMOTHERAPEUTICS [Suspect]
     Indication: PRODUCT USED FOR UNKNOWN INDICATION
     Dosage: DURING: HOPSITALIZATION

REACTIONS (2)
  - Systemic lupus erythematosus [Recovered/Resolved with Sequelae]
  - Pneumonia [Recovered/Resolved]
